FAERS Safety Report 7126672-9 (Version None)
Quarter: 2010Q4

REPORT INFORMATION
  Report Type: 
  Country: None (occurrence: None)
  Receive Date: 20101129
  Receipt Date: 20101124
  Transmission Date: 20110411
  Serious: Yes (Hospitalization)
  Sender: FDA-Public Use
  Company Number: CH-ROCHE-744238

PATIENT
  Age: 42 Year
  Sex: Female

DRUGS (7)
  1. RIVOTRIL [Suspect]
     Route: 048
  2. RIVOTRIL [Suspect]
     Dosage: OVERDOSE
     Route: 048
     Dates: start: 20101105, end: 20101105
  3. TRANSTEC [Suspect]
     Dosage: OVERDOSE
     Route: 065
     Dates: start: 20101105, end: 20101105
  4. TRANSTEC [Suspect]
     Dosage: FORM REPORTED AS TTS PATCH
     Route: 065
  5. TEMGESIC [Suspect]
     Dosage: OVERDOSE
     Route: 060
     Dates: start: 20101105, end: 20101105
  6. TEMGESIC [Suspect]
     Dosage: AS NEEDED
     Route: 060
  7. AMITRIPTYLINE HYDROCHLORIDE [Concomitant]
     Dosage: DURATION OF USE: LONG TERM
     Route: 048

REACTIONS (4)
  - INTENTIONAL OVERDOSE [None]
  - MIOSIS [None]
  - SOMNOLENCE [None]
  - SUICIDAL IDEATION [None]
